FAERS Safety Report 4451188-8 (Version None)
Quarter: 2004Q3

REPORT INFORMATION
  Report Type: 
  Country: None (occurrence: None)
  Receive Date: 20040916
  Receipt Date: 20040910
  Transmission Date: 20050211
  Serious: Yes (Death)
  Sender: FDA-Public Use
  Company Number: ZA-BRISTOL-MYERS SQUIBB COMPANY-12699666

PATIENT
  Age: 46 Year

DRUGS (3)
  1. STOCRIN [Suspect]
  2. STAVUDINE [Suspect]
  3. VIDEX [Suspect]

REACTIONS (1)
  - LACTIC ACIDOSIS [None]
